FAERS Safety Report 11686721 (Version 35)
Quarter: 2021Q1

REPORT INFORMATION
  Report Type: Spontaneous
  Country: US (occurrence: US)
  Receive Date: 20151030
  Receipt Date: 20210208
  Transmission Date: 20210419
  Serious: Yes (Other)
  Sender: FDA-Public Use
  Company Number: US-PFIZER INC-2015369554

PATIENT
  Age: 53 Year
  Sex: Female
  Weight: 50 kg

DRUGS (52)
  1. PREMARIN [Interacting]
     Active Substance: ESTROGENS, CONJUGATED
     Indication: OOPHORECTOMY BILATERAL
     Dosage: 0.625 MG, 2X/DAY
     Route: 048
     Dates: start: 201602
  2. PREMARIN [Interacting]
     Active Substance: ESTROGENS, CONJUGATED
     Dosage: 0.625 MG (VAGINAL APPLICATOR TO THE FIRST LINE WITH THE LOWEST AMOUNT)
     Route: 067
     Dates: start: 201807
  3. PREMARIN [Interacting]
     Active Substance: ESTROGENS, CONJUGATED
     Dosage: 0.625 MG (SUFFICIENT PV 3 X WEEK)
  4. PREMARIN [Interacting]
     Active Substance: ESTROGENS, CONJUGATED
     Dosage: UNK
  5. CLONAZEPAM. [Concomitant]
     Active Substance: CLONAZEPAM
     Dosage: UNK, 1X/DAY  (0.25 TO 0.5 MG TABLET NIGHTLY BY MOUTH)
     Route: 048
  6. PREMARIN [Interacting]
     Active Substance: ESTROGENS, CONJUGATED
     Dosage: UNK
  7. PREMARIN [Interacting]
     Active Substance: ESTROGENS, CONJUGATED
     Dosage: UNK
     Dates: start: 201701
  8. PREMARIN [Interacting]
     Active Substance: ESTROGENS, CONJUGATED
     Dosage: 0.5 G, THREE TIMES PER WEEK
     Route: 067
  9. VOLTAREN [Concomitant]
     Active Substance: DICLOFENAC SODIUM
     Indication: ARTHRITIS
     Dosage: 2 MG (1 + 3/4 INCH STRIP), AS NEEDED
     Route: 061
     Dates: start: 2007
  10. EVENING PRIMROSE OIL [Concomitant]
     Active Substance: EVENING PRIMROSE OIL\HERBALS
     Indication: SUPPLEMENTATION THERAPY
     Dosage: 1300 MG, DAILY (SOFT GEL CAPSULE)
     Route: 048
     Dates: start: 201708
  11. LANSOPRAZOLE. [Concomitant]
     Active Substance: LANSOPRAZOLE
     Indication: GASTROOESOPHAGEAL REFLUX DISEASE
     Dosage: 30 MG, DAILY
     Route: 048
     Dates: start: 201708
  12. PREMARIN [Interacting]
     Active Substance: ESTROGENS, CONJUGATED
     Dosage: 1.25 MG, 1X/DAY
     Route: 048
  13. PREMARIN [Interacting]
     Active Substance: ESTROGENS, CONJUGATED
     Dosage: 1.25 MG, DAILY
     Route: 048
  14. SYNTHROID [Interacting]
     Active Substance: LEVOTHYROXINE SODIUM
     Indication: HORMONE REPLACEMENT THERAPY
     Dosage: 75 UG, DAILY
     Route: 048
     Dates: start: 201602
  15. SYNTHROID [Interacting]
     Active Substance: LEVOTHYROXINE SODIUM
     Dosage: 100 UG, DAILY
     Route: 048
  16. MOMETASONE FUROATE. [Concomitant]
     Active Substance: MOMETASONE FUROATE
     Indication: RASH
     Dosage: 0.1 %, AS NEEDED
  17. FLUTICASONE PROPIONATE. [Concomitant]
     Active Substance: FLUTICASONE PROPIONATE
     Indication: HYPERSENSITIVITY
     Dosage: 50 UG, AS NEEDED [2 SPRAYS A DAY]
     Dates: start: 2016
  18. PREMARIN [Interacting]
     Active Substance: ESTROGENS, CONJUGATED
     Dosage: 1.25 MG, 1X/DAY
     Route: 048
  19. PREMARIN [Interacting]
     Active Substance: ESTROGENS, CONJUGATED
     Dosage: 1.25 MG, DAILY
  20. PREMARIN [Interacting]
     Active Substance: ESTROGENS, CONJUGATED
     Dosage: 0.625 MG, AS NEEDED  (THREE TIMES A WEEK OR AS NEEDED)
     Route: 067
     Dates: start: 2008
  21. KETOCONAZOLE. [Concomitant]
     Active Substance: KETOCONAZOLE
     Indication: RASH
     Dosage: 2 %, AS NEEDED
     Route: 061
     Dates: start: 2009
  22. PREMARIN [Suspect]
     Active Substance: ESTROGENS, CONJUGATED
     Indication: ARTIFICIAL MENOPAUSE
     Dosage: 1.25 MG, 1X/DAY
     Route: 048
     Dates: start: 1983, end: 1983
  23. PREMARIN [Interacting]
     Active Substance: ESTROGENS, CONJUGATED
     Dosage: 1.25 MG, 1X/DAY
     Route: 048
  24. PREMARIN [Interacting]
     Active Substance: ESTROGENS, CONJUGATED
     Indication: VULVOVAGINAL DRYNESS
     Dosage: 0.625 MG, 1X/DAY (AT BED TIME)
     Dates: start: 2008
  25. PREMARIN [Interacting]
     Active Substance: ESTROGENS, CONJUGATED
     Indication: VULVOVAGINAL DISCOMFORT
     Dosage: 0.65 MG, 1X/DAY (APPLICATOR USES 0.5 APPLIED ONCE NIGHTLY)
  26. SYNTHROID [Interacting]
     Active Substance: LEVOTHYROXINE SODIUM
     Dosage: 88 UG, DAILY
  27. SYNTHROID [Interacting]
     Active Substance: LEVOTHYROXINE SODIUM
     Dosage: 88 UG, DAILY
     Route: 048
  28. SYNTHROID [Interacting]
     Active Substance: LEVOTHYROXINE SODIUM
     Dosage: 0.88 UG, DAILY
     Route: 048
  29. SYNTHROID [Interacting]
     Active Substance: LEVOTHYROXINE SODIUM
     Dosage: 88 UG, UNK
  30. SYNTHROID [Interacting]
     Active Substance: LEVOTHYROXINE SODIUM
     Dosage: UNK
  31. CLONAZEPAM. [Concomitant]
     Active Substance: CLONAZEPAM
     Indication: NERVOUS SYSTEM DISORDER
     Dosage: 1/2 TO 1 TABLET NIGHTLY, AS NEEDED
  32. CLONAZEPAM. [Concomitant]
     Active Substance: CLONAZEPAM
     Dosage: 0.5 MG, DAILY (0.5 MG AND CAN TAKE UP TO 2MG PILL DAILY)
     Route: 048
  33. ASPIRIN. [Concomitant]
     Active Substance: ASPIRIN
     Indication: CEREBROVASCULAR ACCIDENT PROPHYLAXIS
     Dosage: 81 MG, DAILY
     Route: 048
  34. PREMARIN [Interacting]
     Active Substance: ESTROGENS, CONJUGATED
     Indication: VULVOVAGINAL PAIN
     Dosage: 0.625 MG, 1X/DAY (1 APPLICATOR A DAY)
  35. PREMARIN [Interacting]
     Active Substance: ESTROGENS, CONJUGATED
     Indication: HORMONE REPLACEMENT THERAPY
     Dosage: UNK
  36. SYNTHROID [Interacting]
     Active Substance: LEVOTHYROXINE SODIUM
     Indication: HYPOTHYROIDISM
     Dosage: 100 UG 1X/DAY OR SIX TIMES A WEEK
     Route: 048
     Dates: start: 1983, end: 201602
  37. SYNTHROID [Interacting]
     Active Substance: LEVOTHYROXINE SODIUM
     Dosage: 88 UG, 1X/DAY
     Route: 048
     Dates: start: 2016
  38. SYNTHROID [Interacting]
     Active Substance: LEVOTHYROXINE SODIUM
     Dosage: 88 UG, SINGLE (ONCE)
  39. CLONAZEPAM. [Concomitant]
     Active Substance: CLONAZEPAM
     Indication: MUSCLE SPASMS
     Dosage: 1 MG, 1X/DAY
  40. CLONAZEPAM. [Concomitant]
     Active Substance: CLONAZEPAM
     Dosage: 0.5 MG, DAILY (1MG TABLET, TAKES 1/2 TABLET A DAY BY MOUTH)
     Route: 048
  41. BABY ASPIRIN [Concomitant]
     Active Substance: ASPIRIN
     Dosage: 81 MG, 1X/DAY
  42. PREMARIN [Interacting]
     Active Substance: ESTROGENS, CONJUGATED
     Indication: HORMONE REPLACEMENT THERAPY
     Dosage: 0.625 MG, 1X/DAY
     Route: 048
  43. PREMARIN [Interacting]
     Active Substance: ESTROGENS, CONJUGATED
     Dosage: 1.25 MG, DAILY
     Route: 048
  44. PREMARIN [Interacting]
     Active Substance: ESTROGENS, CONJUGATED
     Dosage: 1.25 MG, 1X/DAY
     Route: 048
  45. PREMARIN [Interacting]
     Active Substance: ESTROGENS, CONJUGATED
     Indication: MENOPAUSE
     Dosage: 0.5 MG, DAILY
     Route: 067
     Dates: start: 2008
  46. PREMARIN [Interacting]
     Active Substance: ESTROGENS, CONJUGATED
     Dosage: 0.5 G, AS NEEDED (3?5 TIMES WEEKLY DEPENDING ON THE CONDITION OF HER VAGINA)
     Route: 067
  47. EVENING PRIMROSE OIL [Concomitant]
     Active Substance: EVENING PRIMROSE OIL\HERBALS
     Indication: ARTHRITIS
     Dosage: 1300 MG, 1X/DAY
     Dates: start: 2010
  48. PREMARIN [Interacting]
     Active Substance: ESTROGENS, CONJUGATED
     Indication: HYSTERECTOMY
     Dosage: 1.25 MG, 1X/DAY (2 TABLETS ONCE DAILY)
     Route: 048
     Dates: start: 2015
  49. PREMARIN [Interacting]
     Active Substance: ESTROGENS, CONJUGATED
     Dosage: UNK,  THREE TIMES A WEEK
  50. CLONAZEPAM. [Concomitant]
     Active Substance: CLONAZEPAM
     Dosage: UNK, DAILY (TAKES 1/2 TABLET A DAY BY MOUTH)
     Route: 048
  51. NAPROXEN SODIUM. [Concomitant]
     Active Substance: NAPROXEN SODIUM
     Indication: ARTHRITIS
     Dosage: UNK, AS NEEDED
     Dates: start: 2007
  52. TRIAMCINOLONE ACETONIDE. [Concomitant]
     Active Substance: TRIAMCINOLONE ACETONIDE
     Indication: RASH
     Dosage: 0.1 %, AS NEEDED

REACTIONS (35)
  - Off label use [Unknown]
  - Weight decreased [Unknown]
  - Soliloquy [Not Recovered/Not Resolved]
  - Contraindicated product administered [Unknown]
  - Feeling abnormal [Unknown]
  - Dry skin [Unknown]
  - Alopecia [Unknown]
  - Pollakiuria [Unknown]
  - Irregular sleep wake rhythm disorder [Not Recovered/Not Resolved]
  - Nervous system disorder [Unknown]
  - Confusional state [Unknown]
  - Vulval disorder [Unknown]
  - Hypothermia [Unknown]
  - Drug ineffective [Not Recovered/Not Resolved]
  - Product dose omission issue [Unknown]
  - Poor quality product administered [Unknown]
  - Hormone level abnormal [Unknown]
  - Illness [Not Recovered/Not Resolved]
  - Weight fluctuation [Unknown]
  - Product coating issue [Unknown]
  - Drug interaction [Unknown]
  - Insomnia [Unknown]
  - Oestrone decreased [Unknown]
  - Mood swings [Unknown]
  - Pain [Unknown]
  - Product complaint [Unknown]
  - Amnesia [Unknown]
  - Malabsorption [Unknown]
  - Migraine [Not Recovered/Not Resolved]
  - Expired product administered [Unknown]
  - Circadian rhythm sleep disorder [Not Recovered/Not Resolved]
  - Somnolence [Unknown]
  - Vulvovaginal burning sensation [Not Recovered/Not Resolved]
  - Breast disorder [Not Recovered/Not Resolved]
  - Psychotic disorder [Recovered/Resolved]

NARRATIVE: CASE EVENT DATE: 2005
